FAERS Safety Report 7232949-9 (Version None)
Quarter: 2011Q1

REPORT INFORMATION
  Report Type: 
  Country: None (occurrence: None)
  Receive Date: 20110119
  Receipt Date: 20110106
  Transmission Date: 20110831
  Serious: Yes (Hospitalization, Other)
  Sender: FDA-Public Use
  Company Number: FR-ELI_LILLY_AND_COMPANY-FR201101001444

PATIENT
  Sex: Female

DRUGS (2)
  1. CISPLATIN [Concomitant]
     Indication: LUNG ADENOCARCINOMA
     Dosage: 1000 MG/M2, UNKNOWN
     Route: 042
     Dates: start: 20100825, end: 20101009
  2. GEMZAR [Suspect]
     Indication: LUNG ADENOCARCINOMA
     Dosage: 1000 MG/M2, UNKNOWN
     Route: 042
     Dates: start: 20100825, end: 20101009

REACTIONS (11)
  - GAIT DISTURBANCE [None]
  - HIP FRACTURE [None]
  - URINE ABNORMALITY [None]
  - HYPERTENSION [None]
  - HEADACHE [None]
  - BLOOD CHLORIDE DECREASED [None]
  - FALL [None]
  - VISION BLURRED [None]
  - BLOOD MAGNESIUM DECREASED [None]
  - POSTERIOR REVERSIBLE ENCEPHALOPATHY SYNDROME [None]
  - NEUROLOGICAL DECOMPENSATION [None]
